FAERS Safety Report 10327543 (Version 3)
Quarter: 2015Q1

REPORT INFORMATION
  Report Type: Report from Study
  Country: US (occurrence: US)
  Receive Date: 20140721
  Receipt Date: 20150123
  Transmission Date: 20150720
  Serious: Yes (Hospitalization)
  Sender: FDA-Public Use
  Company Number: US-BIOGENIDEC-2014BI070511

PATIENT
  Age: 58 Year
  Sex: Female

DRUGS (1)
  1. TYSABRI [Suspect]
     Active Substance: NATALIZUMAB
     Indication: MULTIPLE SCLEROSIS
     Route: 042
     Dates: start: 20070417

REACTIONS (8)
  - Therapeutic procedure [Recovered/Resolved]
  - Tendon rupture [Recovered/Resolved]
  - Hemiparesis [Recovered/Resolved]
  - Immobile [Not Recovered/Not Resolved]
  - Procedural pain [Recovered/Resolved]
  - Bone operation [Recovered/Resolved]
  - Skin ulcer [Recovered/Resolved]
  - Hepatic enzyme increased [Recovered/Resolved]

NARRATIVE: CASE EVENT DATE: 201405
